FAERS Safety Report 6622769-8 (Version None)
Quarter: 2010Q1

REPORT INFORMATION
  Report Type: 
  Country: None (occurrence: None)
  Receive Date: 20100304
  Receipt Date: 20100223
  Transmission Date: 20100710
  Serious: Yes (Life-Threatening)
  Sender: FDA-Public Use
  Company Number: 2010EU000765

PATIENT

DRUGS (1)
  1. MYCAMINE [Suspect]

REACTIONS (7)
  - BRONCHOPULMONARY DYSPLASIA [None]
  - CEREBRAL HAEMORRHAGE [None]
  - HAEMODYNAMIC INSTABILITY [None]
  - HYPONATRAEMIA [None]
  - HYPOXIA [None]
  - NOSOCOMIAL INFECTION [None]
  - RETINOPATHY [None]
